APPROVED DRUG PRODUCT: OXYCODONE HYDROCHLORIDE
Active Ingredient: OXYCODONE HYDROCHLORIDE
Strength: 5MG
Dosage Form/Route: CAPSULE;ORAL
Application: A205177 | Product #001 | TE Code: AB
Applicant: ANI PHARMACEUTICALS INC
Approved: Mar 31, 2016 | RLD: No | RS: No | Type: RX